FAERS Safety Report 19673795 (Version 1)
Quarter: 2021Q3

REPORT INFORMATION
  Report Type: Spontaneous
  Country: US (occurrence: US)
  Receive Date: 20210808
  Receipt Date: 20210808
  Transmission Date: 20211014
  Serious: Yes (Disabling)
  Sender: FDA-Public Use
  Company Number: None

PATIENT
  Age: 29 Year
  Sex: Female
  Weight: 53.55 kg

DRUGS (6)
  1. MOBIC [Concomitant]
     Active Substance: MELOXICAM
  2. BIOTIN [Concomitant]
     Active Substance: BIOTIN
  3. FLEXERIL [Concomitant]
     Active Substance: CYCLOBENZAPRINE HYDROCHLORIDE
  4. ZOFRAN [Concomitant]
     Active Substance: ONDANSETRON HYDROCHLORIDE
  5. SCOPOLAMINE TRANSDERMAL PATCH [Suspect]
     Active Substance: SCOPOLAMINE
     Indication: NAUSEA
     Dosage: ?          QUANTITY:1 PATCH(ES);OTHER FREQUENCY:REMOVE AFTER 72 HR;?
     Route: 061
     Dates: start: 20210726, end: 20210729
  6. TYLENOL [Concomitant]
     Active Substance: ACETAMINOPHEN

REACTIONS (7)
  - Vomiting [None]
  - Dry mouth [None]
  - Disorientation [None]
  - Dysuria [None]
  - Euphoric mood [None]
  - Speech disorder [None]
  - Vision blurred [None]

NARRATIVE: CASE EVENT DATE: 20210726
